FAERS Safety Report 9599723 (Version 1)
Quarter: 2013Q4

REPORT INFORMATION
  Report Type: Spontaneous
  Country: US (occurrence: US)
  Receive Date: 20131004
  Receipt Date: 20131004
  Transmission Date: 20140711
  Serious: No
  Sender: FDA-Public Use
  Company Number: US-AMGEN-USASP2013030175

PATIENT
  Age: 55 Year
  Sex: Female
  Weight: 75.74 kg

DRUGS (14)
  1. ENBREL [Suspect]
     Indication: PRODUCT USED FOR UNKNOWN INDICATION
     Dosage: 50 MG, QWK
     Route: 058
  2. CYMBALTA [Concomitant]
     Dosage: 30 MG, UNK
  3. WELLBUTRIN [Concomitant]
     Dosage: 100 MG, UNK SR
  4. TIZANIDINE [Concomitant]
     Dosage: 6 MG, UNK
  5. PREDNISONE [Concomitant]
     Dosage: 10 MG, UNK
  6. NUCYNTA [Concomitant]
     Dosage: 100 MG, UNK
  7. NUCYNTA [Concomitant]
     Dosage: 75 MG, UNK
  8. PROTONIX [Concomitant]
     Dosage: 20 MG, UNK
  9. VITAMIN D                          /00107901/ [Concomitant]
     Dosage: 50000 UNIT, UNK
  10. METOPROLOL TARTRATE [Concomitant]
     Dosage: 25 MG, UNK
  11. KLONOPIN [Concomitant]
     Dosage: 2 MG, UNK
  12. VITAMIN B-12 [Concomitant]
     Dosage: 1000 MUG, UNK
  13. MULTIVITAMINS, PLAIN [Concomitant]
     Dosage: UNK ESSENT
  14. HUMIRA [Concomitant]
     Dosage: 40 MG, UNK

REACTIONS (1)
  - Drug ineffective [Unknown]
